FAERS Safety Report 12920493 (Version 1)
Quarter: 2016Q4

REPORT INFORMATION
  Report Type: Spontaneous
  Country: US (occurrence: US)
  Receive Date: 20161106
  Receipt Date: 20161106
  Transmission Date: 20170207
  Serious: Yes (Life-Threatening)
  Sender: FDA-Public Use
  Company Number: None

PATIENT
  Age: 48 Year
  Sex: Male
  Weight: 87.75 kg

DRUGS (3)
  1. QVAR [Concomitant]
     Active Substance: BECLOMETHASONE DIPROPIONATE
  2. PROVENTIL [Concomitant]
     Active Substance: ALBUTEROL
  3. TESTOSTERONE CYPIONATE IN SESAME [Suspect]
     Active Substance: TESTOSTERONE CYPIONATE
     Indication: ANDROGEN DEFICIENCY
     Dosage: ?          QUANTITY:1 INJECTION(S);OTHER FREQUENCY:TWICE WEEKLY;?
     Route: 030
     Dates: start: 20160501, end: 20160801

REACTIONS (2)
  - Abdominal pain [None]
  - Hepatitis [None]

NARRATIVE: CASE EVENT DATE: 20161001
